FAERS Safety Report 4490351-7 (Version None)
Quarter: 2004Q3

REPORT INFORMATION
  Report Type: 
  Country: None (occurrence: None)
  Receive Date: 20040921
  Receipt Date: 20031201
  Transmission Date: 20050211
  Serious: Yes (Hospitalization)
  Sender: FDA-Public Use
  Company Number: 163-20785-03120056(0)

PATIENT
  Age: 54 Year
  Sex: Male
  Weight: 80.2867 kg

DRUGS (5)
  1. THALOMID [Suspect]
     Indication: COLON CANCER
     Dosage: 300 MG, DAILY, ORAL
     Route: 048
     Dates: start: 20030725, end: 32000111
  2. DURAGESIC (FENTANYL) (POLUTICE OR PATCH) [Concomitant]
  3. TENORETIC (TENORETIC) [Concomitant]
  4. CELEBREX [Concomitant]
  5. PHENERGAN [Concomitant]

REACTIONS (8)
  - ANAEMIA [None]
  - DISEASE PROGRESSION [None]
  - HYDRONEPHROSIS [None]
  - HYPERTENSION [None]
  - NAUSEA [None]
  - RENAL FAILURE [None]
  - URETERIC OBSTRUCTION [None]
  - VOMITING [None]
